FAERS Safety Report 8925216 (Version 1)
Quarter: 2012Q4

REPORT INFORMATION
  Report Type: 
  Country: US (occurrence: US)
  Receive Date: 20121126
  Receipt Date: 20121126
  Transmission Date: 20130627
  Serious: Yes (Other)
  Sender: FDA-Public Use
  Company Number: US-BAYER-2012-123486

PATIENT
  Age: 48 Year
  Sex: Male
  Weight: 74.38 kg

DRUGS (3)
  1. ASPIRIN ^BAYER^ [Suspect]
     Indication: MYOCARDIAL INFARCT PROPHYLAXIS
     Dosage: 1 DF, QD
     Route: 048
  2. ASPIRIN ^BAYER^ [Suspect]
     Indication: MYOCARDIAL INFARCT PROPHYLAXIS
     Dosage: 4 dose forms
     Route: 048
     Dates: start: 20121116
  3. PRILOSEC [Concomitant]

REACTIONS (2)
  - Myocardial infarction [None]
  - Incorrect dose administered [None]
